FAERS Safety Report 20417181 (Version 3)
Quarter: 2022Q1

REPORT INFORMATION
  Report Type: Report from Study
  Country: US (occurrence: US)
  Receive Date: 20220202
  Receipt Date: 20220328
  Transmission Date: 20220423
  Serious: Yes (Hospitalization, Other)
  Sender: FDA-Public Use
  Company Number: US-BAYER-2022A010750

PATIENT
  Age: 59 Year
  Sex: Male

DRUGS (5)
  1. STIVARGA [Suspect]
     Active Substance: REGORAFENIB
     Indication: Appendix cancer
     Dosage: 160 MG, QD (FOR 21 DAYS AND 7 DAYS OFF)
     Route: 048
     Dates: start: 20220114
  2. STIVARGA [Suspect]
     Active Substance: REGORAFENIB
     Indication: Metastases to the mediastinum
     Dosage: UNK
  3. STIVARGA [Suspect]
     Active Substance: REGORAFENIB
     Indication: Appendix cancer
     Dosage: 120 MG, QD
  4. TEGRETOL [Suspect]
     Active Substance: CARBAMAZEPINE
     Dosage: UNK
  5. KEPPRA [Concomitant]
     Active Substance: LEVETIRACETAM
     Dosage: UNK

REACTIONS (21)
  - Dehydration [Not Recovered/Not Resolved]
  - Dehydration [Recovering/Resolving]
  - Diarrhoea [Recovering/Resolving]
  - Constipation [Not Recovered/Not Resolved]
  - Memory impairment [Not Recovered/Not Resolved]
  - Confusional state [Not Recovered/Not Resolved]
  - Drug interaction [None]
  - Disorientation [Recovered/Resolved]
  - Gait deviation [Recovered/Resolved]
  - Gait disturbance [Recovered/Resolved]
  - Repetitive speech [Recovered/Resolved]
  - Diarrhoea [Recovering/Resolving]
  - Dehydration [Recovering/Resolving]
  - Adverse drug reaction [None]
  - Drug interaction [None]
  - Off label use [None]
  - Diarrhoea [Not Recovered/Not Resolved]
  - Constipation [Not Recovered/Not Resolved]
  - Blood bilirubin increased [None]
  - Pyrexia [None]
  - Drug ineffective [None]

NARRATIVE: CASE EVENT DATE: 20220101
